FAERS Safety Report 7167040-3 (Version None)
Quarter: 2010Q4

REPORT INFORMATION
  Report Type: 
  Country: None (occurrence: None)
  Receive Date: 20101216
  Receipt Date: 20101209
  Transmission Date: 20110411
  Serious: Yes (Hospitalization)
  Sender: FDA-Public Use
  Company Number: B0688284A

PATIENT
  Sex: Female
  Weight: 78 kg

DRUGS (11)
  1. TYKERB [Suspect]
     Indication: BREAST CANCER
     Dosage: 1750MG PER DAY
     Route: 048
     Dates: start: 20100304, end: 20100317
  2. XELODA [Concomitant]
     Dosage: 2400MG PER DAY
     Route: 048
     Dates: start: 20100304, end: 20100317
  3. OLMETEC [Concomitant]
     Indication: HYPERTENSION
     Route: 048
  4. AMLODIN [Concomitant]
     Indication: HYPERTENSION
     Route: 048
  5. LOSARTAN POTASSIUM AND HYDROCHLOROTHIAZIDE [Concomitant]
     Indication: HYPERTENSION
     Route: 048
  6. HUMALOG [Concomitant]
     Indication: DIABETES MELLITUS
     Route: 058
  7. GASTER D [Concomitant]
     Indication: GASTRITIS
     Route: 048
  8. MOBIC [Concomitant]
     Indication: CANCER PAIN
     Route: 048
  9. FUROSEMIDE [Concomitant]
     Route: 048
  10. ALDACTONE [Concomitant]
     Route: 048
  11. MAGMITT [Concomitant]
     Indication: CONSTIPATION
     Route: 048

REACTIONS (1)
  - DIARRHOEA [None]
